FAERS Safety Report 7300471-7 (Version None)
Quarter: 2011Q1

REPORT INFORMATION
  Report Type: 
  Country: None (occurrence: None)
  Receive Date: 20110217
  Receipt Date: 20110214
  Transmission Date: 20110831
  Serious: Yes (Life-Threatening, Other)
  Sender: FDA-Public Use
  Company Number: PHHY2010JP78355

PATIENT
  Age: 35 Year
  Sex: Female

DRUGS (4)
  1. NEORAL [Suspect]
     Indication: BRONCHITIS CHRONIC
  2. ADRENAL HORMONE PREPARATIONS [Concomitant]
     Dosage: UNK
  3. PREDNISOLONE [Concomitant]
     Indication: OBLITERATIVE BRONCHIOLITIS
     Dosage: UNK
  4. NEORAL [Suspect]
     Indication: STEM CELL TRANSPLANT
     Dosage: UNK

REACTIONS (2)
  - PNEUMOMEDIASTINUM [None]
  - SUBCUTANEOUS EMPHYSEMA [None]
